FAERS Safety Report 10077731 (Version 3)
Quarter: 2014Q2

REPORT INFORMATION
  Report Type: Spontaneous
  Country: US (occurrence: US)
  Receive Date: 20140414
  Receipt Date: 20140523
  Transmission Date: 20141212
  Serious: Yes (Other)
  Sender: FDA-Public Use
  Company Number: US-TARO-2014P1003026

PATIENT
  Age: 64 Year
  Sex: Female
  Weight: 86.18 kg

DRUGS (19)
  1. NYSTATIN + TRIAMCINOLONE ACETONIDE CREAM USP [Suspect]
     Route: 061
     Dates: end: 20140220
  2. LORTAB [Concomitant]
  3. ZANAFLEX [Concomitant]
  4. RISPERDAL [Concomitant]
  5. PROBIOTIC [Concomitant]
  6. MULTI VITAMIN [Concomitant]
  7. SENIOR VITAMIN [Concomitant]
  8. OMEGA 3 [Concomitant]
  9. CALCIUM + MAGNESIUM [Concomitant]
  10. CO Q 10 [Concomitant]
  11. KLONOPIN [Concomitant]
  12. KLONOPIN [Concomitant]
  13. OMEPRAZOLE [Concomitant]
  14. PROZAC [Concomitant]
  15. NEURONTIN [Concomitant]
  16. AMBIEN [Concomitant]
  17. SIMVASTATIN [Concomitant]
  18. TRAMADOL HCL [Concomitant]
  19. BENICAR HCT [Concomitant]

REACTIONS (10)
  - Application site pain [Recovering/Resolving]
  - Application site hypersensitivity [Recovering/Resolving]
  - Burns third degree [Recovering/Resolving]
  - Application site scar [Unknown]
  - Application site exfoliation [Unknown]
  - Application site discolouration [Not Recovered/Not Resolved]
  - Sinusitis [Unknown]
  - Product quality issue [Unknown]
  - Dermatitis [Unknown]
  - Fungal infection [Unknown]
